FAERS Safety Report 4659189-1 (Version None)
Quarter: 2005Q2

REPORT INFORMATION
  Report Type: 
  Country: None (occurrence: None)
  Receive Date: 20050511
  Receipt Date: 20050426
  Transmission Date: 20051028
  Serious: Yes (Hospitalization, Other)
  Sender: FDA-Public Use
  Company Number: US-AMGEN-US129328

PATIENT
  Sex: Male

DRUGS (13)
  1. EPOGEN [Suspect]
     Indication: DIALYSIS
     Route: 042
     Dates: start: 20000728, end: 20050331
  2. TRILEPTAL [Concomitant]
  3. PREDNISONE [Concomitant]
  4. FOLIC ACID [Concomitant]
  5. IRON [Concomitant]
  6. CELEBREX [Concomitant]
  7. ASPIRIN [Concomitant]
  8. RENAGEL [Concomitant]
  9. XANAX [Concomitant]
  10. FENTANYL [Concomitant]
  11. TYLENOL (CAPLET) [Concomitant]
  12. MORPHINE [Concomitant]
  13. ARANESP [Concomitant]
     Indication: DIALYSIS
     Route: 042
     Dates: start: 20050331

REACTIONS (7)
  - ABDOMINAL PAIN [None]
  - CLOSTRIDIUM COLITIS [None]
  - CONDITION AGGRAVATED [None]
  - DECREASED APPETITE [None]
  - NEUTROPENIA [None]
  - THROMBOCYTOPENIA [None]
  - UPPER RESPIRATORY TRACT INFECTION [None]
